FAERS Safety Report 13380279 (Version 1)
Quarter: 2017Q1

REPORT INFORMATION
  Report Type: Spontaneous
  Country: DE (occurrence: DE)
  Receive Date: 20170329
  Receipt Date: 20170329
  Transmission Date: 20170429
  Serious: Yes (Other)
  Sender: FDA-Public Use
  Company Number: DE-AMGEN-DEUSP2017044729

PATIENT
  Sex: Male

DRUGS (1)
  1. NPLATE [Suspect]
     Active Substance: ROMIPLOSTIM
     Indication: MATERNAL EXPOSURE DURING PREGNANCY
     Dosage: 150 TO 200 MCG,QWK
     Route: 064
     Dates: start: 20160422

REACTIONS (1)
  - Thrombocytopenia [Recovered/Resolved]
